FAERS Safety Report 9455564 (Version 1)
Quarter: 2013Q3

REPORT INFORMATION
  Report Type: Spontaneous
  Country: US (occurrence: US)
  Receive Date: 20130813
  Receipt Date: 20130813
  Transmission Date: 20140515
  Serious: No
  Sender: FDA-Public Use
  Company Number: US-PFIZER INC-2013231870

PATIENT
  Sex: Female

DRUGS (2)
  1. NORVASC [Suspect]
     Dosage: 10 MG, 1X/DAY (IN EVENING)
  2. HYDROCHLOROTHIAZIDE/VALSARTAN [Suspect]
     Dosage: UNK, 1X/DAY (IN MORNING)

REACTIONS (2)
  - Blood pressure systolic increased [Unknown]
  - Local swelling [Unknown]
